FAERS Safety Report 20127911 (Version 1)
Quarter: 2021Q4

REPORT INFORMATION
  Report Type: Spontaneous
  Country: US (occurrence: None)
  Receive Date: 20211129
  Receipt Date: 20211129
  Transmission Date: 20220303
  Serious: No
  Sender: FDA-Public Use
  Company Number: US-ROCHE-2717391

PATIENT
  Sex: Female

DRUGS (4)
  1. HERCEPTIN [Suspect]
     Active Substance: TRASTUZUMAB
     Indication: Breast cancer female
     Dosage: RESUMING ON 07/DEC/2020, ONGOING: YES
     Route: 065
  2. TUKYSA [Suspect]
     Active Substance: TUCATINIB
     Indication: Breast cancer female
     Dosage: ONGOING: YES
     Route: 065
  3. XELODA [Suspect]
     Active Substance: CAPECITABINE
     Indication: Breast cancer female
     Dosage: EVERY AM WITH FOOD
     Route: 065
  4. XELODA [Suspect]
     Active Substance: CAPECITABINE
     Dosage: EVERY PM WITH FOOD
     Route: 065

REACTIONS (7)
  - Diarrhoea [Recovered/Resolved]
  - Dry skin [Recovered/Resolved]
  - Dizziness [Recovered/Resolved]
  - Neoplasm [Unknown]
  - Swelling [Unknown]
  - Constipation [Unknown]
  - Abdominal distension [Unknown]
